FAERS Safety Report 7204882-X (Version None)
Quarter: 2010Q4

REPORT INFORMATION
  Report Type: 
  Country: None (occurrence: None)
  Receive Date: 20101230
  Receipt Date: 20101221
  Transmission Date: 20110411
  Serious: Yes (Other)
  Sender: FDA-Public Use
  Company Number: CH-BAXTER-2010BH030869

PATIENT
  Age: 24 Year
  Sex: Female

DRUGS (7)
  1. CYCLOPHOSPHAMIDE [Suspect]
     Indication: CARCINOMA IN SITU
     Route: 041
     Dates: start: 20011227
  2. ETOPOSIDE [Suspect]
     Indication: CARCINOMA IN SITU
     Route: 041
     Dates: start: 20011220
  3. COSMEGEN [Suspect]
     Indication: CARCINOMA IN SITU
     Route: 041
     Dates: start: 20011220
  4. METHOTREXATE [Suspect]
     Indication: CARCINOMA IN SITU
     Route: 041
     Dates: start: 20011220
  5. VINCRISTINE SULFATE [Suspect]
     Indication: CARCINOMA IN SITU
     Route: 041
     Dates: start: 20011227
  6. FOLVITE [Concomitant]
     Indication: PRODUCT USED FOR UNKNOWN INDICATION
     Route: 031
     Dates: start: 20011221
  7. NAVOBAN [Concomitant]
     Indication: PRODUCT USED FOR UNKNOWN INDICATION
     Route: 041
     Dates: start: 20011221

REACTIONS (1)
  - HEPATIC ENZYME INCREASED [None]
